FAERS Safety Report 7693685-8 (Version None)
Quarter: 2011Q3

REPORT INFORMATION
  Report Type: 
  Country: None (occurrence: None)
  Receive Date: 20110819
  Receipt Date: 20110808
  Transmission Date: 20111222
  Serious: Yes (Other)
  Sender: FDA-Public Use
  Company Number: US-ROCHE-700260

PATIENT
  Sex: Male
  Weight: 77.1 kg

DRUGS (7)
  1. ACCUTANE [Suspect]
     Indication: ACNE
     Dosage: 40 MG TWICE DAILY FOR 5 DAYS, 40 MG ONCE DAILY FOR 2 DAYS WEEKLY
     Route: 048
     Dates: start: 20041026, end: 20050527
  2. KETOCONAZOLE [Concomitant]
  3. ERY-TAB [Concomitant]
     Dates: start: 20040524, end: 20050524
  4. TRIAMCINOLONE ACETONIDE [Concomitant]
     Dates: start: 20041108, end: 20050507
  5. TRETINOIN CREAM [Concomitant]
     Dosage: APPLY AT BEDTIME
     Route: 061
     Dates: start: 20040315, end: 20050315
  6. AMOXIL [Concomitant]
     Dates: start: 20040315, end: 20050315
  7. DUAC [Concomitant]
     Route: 047
     Dates: start: 20040315, end: 20060315

REACTIONS (7)
  - INFLAMMATORY BOWEL DISEASE [None]
  - BLOOD CHOLESTEROL INCREASED [None]
  - SUICIDAL IDEATION [None]
  - DEPRESSION [None]
  - CHAPPED LIPS [None]
  - CROHN'S DISEASE [None]
  - COLITIS ULCERATIVE [None]
